FAERS Safety Report 18933879 (Version 1)
Quarter: 2021Q1

REPORT INFORMATION
  Report Type: Spontaneous
  Country: US (occurrence: US)
  Receive Date: 20210224
  Receipt Date: 20210224
  Transmission Date: 20210420
  Serious: Yes (Other)
  Sender: FDA-Public Use
  Company Number: None

PATIENT
  Age: 58 Year
  Sex: Female
  Weight: 60.75 kg

DRUGS (7)
  1. METHOTREXATE INJECTION, USP [Suspect]
     Active Substance: METHOTREXATE
     Indication: SARCOIDOSIS
     Dosage: ?          QUANTITY:1 INJECTION(S);OTHER FREQUENCY:25MG/1ML WKLY;OTHER ROUTE:SUBCUTANEOUSLY?
     Route: 058
  2. PREDNISONE. [Suspect]
     Active Substance: PREDNISONE
  3. METHOTREXATE INJECTION, USP [Suspect]
     Active Substance: METHOTREXATE
     Indication: UVEITIS
     Dosage: ?          QUANTITY:1 INJECTION(S);OTHER FREQUENCY:25MG/1ML WKLY;OTHER ROUTE:SUBCUTANEOUSLY?
     Route: 058
  4. VITAMIN D3 [Concomitant]
     Active Substance: CHOLECALCIFEROL
  5. TEGRETOL/LAMOTRIGINE [Concomitant]
  6. MULTIVITAMIN [Concomitant]
     Active Substance: VITAMINS
  7. FOLIC ACID. [Concomitant]
     Active Substance: FOLIC ACID

REACTIONS (5)
  - Insomnia [None]
  - Burning sensation [None]
  - Ulcer [None]
  - Swelling [None]
  - Gait disturbance [None]

NARRATIVE: CASE EVENT DATE: 20210111
